FAERS Safety Report 4981923-1 (Version None)
Quarter: 2006Q2

REPORT INFORMATION
  Report Type: 
  Country: None (occurrence: None)
  Receive Date: 20060425
  Receipt Date: 20050705
  Transmission Date: 20061013
  Serious: Yes (Hospitalization, Other)
  Sender: FDA-Public Use
  Company Number: US-MERCK-0507USA00601

PATIENT
  Age: 40 Year
  Sex: Male
  Weight: 95 kg

DRUGS (6)
  1. VIOXX [Suspect]
     Indication: ARTHROPATHY
     Route: 048
     Dates: end: 20010630
  2. VIOXX [Suspect]
     Route: 048
     Dates: end: 20010630
  3. VIOXX [Suspect]
     Indication: ARTHRITIS
     Route: 048
     Dates: end: 20010630
  4. VIOXX [Suspect]
     Route: 048
     Dates: end: 20010630
  5. ZANTAC [Concomitant]
     Route: 048
  6. PLENDIL [Concomitant]
     Route: 048

REACTIONS (15)
  - ACUTE CORONARY SYNDROME [None]
  - ANGINA PECTORIS [None]
  - ARTHRALGIA [None]
  - CARDIOVASCULAR DISORDER [None]
  - CERVICOBRACHIAL SYNDROME [None]
  - CORONARY ARTERY DISEASE [None]
  - CORONARY ARTERY STENOSIS [None]
  - JOINT INJURY [None]
  - LIPIDS ABNORMAL [None]
  - MULTI-ORGAN DISORDER [None]
  - MYOCARDIAL INFARCTION [None]
  - NECK PAIN [None]
  - PRESCRIBED OVERDOSE [None]
  - VENTRICULAR HYPERTROPHY [None]
  - WOUND [None]
